FAERS Safety Report 7631212-1 (Version None)
Quarter: 2011Q3

REPORT INFORMATION
  Report Type: 
  Country: None (occurrence: None)
  Receive Date: 20110725
  Receipt Date: 20110720
  Transmission Date: 20111222
  Serious: Yes (Other)
  Sender: FDA-Public Use
  Company Number: US-JNJFOC-20100805092

PATIENT
  Sex: Female

DRUGS (1)
  1. LEVOFLOXACIN [Suspect]
     Indication: NEPHROLITHIASIS
     Route: 048
     Dates: start: 20050207, end: 20050217

REACTIONS (6)
  - EPICONDYLITIS [None]
  - TENDONITIS [None]
  - ROTATOR CUFF SYNDROME [None]
  - TENDON RUPTURE [None]
  - PLANTAR FASCIITIS [None]
  - TENOSYNOVITIS [None]
